FAERS Safety Report 23809041 (Version 1)
Quarter: 2024Q2

REPORT INFORMATION
  Report Type: Spontaneous
  Country: US (occurrence: None)
  Receive Date: 20240501
  Receipt Date: 20240501
  Transmission Date: 20240716
  Serious: Yes (Death)
  Sender: FDA-Public Use
  Company Number: None

PATIENT
  Age: 55 Year
  Sex: Male
  Weight: 65 kg

DRUGS (2)
  1. SULFAMETHOXAZOLE\TRIMETHOPRIM [Suspect]
     Active Substance: SULFAMETHOXAZOLE\TRIMETHOPRIM
     Indication: Pneumocystis jirovecii pneumonia
     Dosage: FREQUENCY : TWICE A DAY;?
     Route: 048
     Dates: start: 20240412, end: 20240419
  2. SULFAMETHOXAZOLE\TRIMETHOPRIM [Suspect]
     Active Substance: SULFAMETHOXAZOLE\TRIMETHOPRIM
     Indication: Prophylaxis

REACTIONS (17)
  - Immune thrombocytopenia [None]
  - Therapy interrupted [None]
  - Gingival bleeding [None]
  - Epistaxis [None]
  - Hypotension [None]
  - Melaena [None]
  - Agitation [None]
  - Anxiety [None]
  - Mental status changes [None]
  - Anaemia [None]
  - Tachycardia [None]
  - Tachypnoea [None]
  - Lactic acidosis [None]
  - Leukocytosis [None]
  - Small intestinal obstruction [None]
  - Intestinal ischaemia [None]
  - General physical health deterioration [None]

NARRATIVE: CASE EVENT DATE: 20240419
